FAERS Safety Report 8538568-6 (Version None)
Quarter: 2012Q3

REPORT INFORMATION
  Report Type: 
  Country: None (occurrence: None)
  Receive Date: 20120726
  Receipt Date: 20120716
  Transmission Date: 20120928
  Serious: Yes (Disabling)
  Sender: FDA-Public Use
  Company Number: FR-JNJFOC-20120708374

PATIENT
  Age: 48 Year
  Sex: Male

DRUGS (6)
  1. OMEPRAZOLE [Concomitant]
     Route: 065
  2. POLARAMINE [Concomitant]
     Route: 065
  3. REMICADE [Suspect]
     Indication: ANKYLOSING SPONDYLITIS
     Route: 042
     Dates: start: 20060503
  4. REMICADE [Suspect]
     Dosage: 51TH INFUSION
     Route: 042
     Dates: start: 20120627
  5. REMICADE [Suspect]
     Route: 042
     Dates: start: 20070101
  6. REMICADE [Suspect]
     Route: 042
     Dates: start: 20120515

REACTIONS (5)
  - BLOOD PRESSURE INCREASED [None]
  - HOT FLUSH [None]
  - FATIGUE [None]
  - DIZZINESS [None]
  - TACHYCARDIA [None]
